FAERS Safety Report 4869631-9 (Version None)
Quarter: 2005Q4

REPORT INFORMATION
  Report Type: 
  Country: None (occurrence: None)
  Receive Date: 20051227
  Receipt Date: 20051222
  Transmission Date: 20060501
  Serious: Yes (Death, Hospitalization)
  Sender: FDA-Public Use
  Company Number: HQWYE704423NOV05

PATIENT
  Age: 74 Year
  Sex: Male

DRUGS (16)
  1. ANCARON (AMIODARONE, TABLET) [Suspect]
     Indication: ATRIAL FIBRILLATION
     Dosage: 200 MG 1X PER 1 DAY; 100 MG 1 X PER 1 DAY; 50 MG 1X PER 1 DAY
     Route: 048
     Dates: start: 20040322, end: 20050908
  2. ANCARON (AMIODARONE, TABLET) [Suspect]
     Indication: PROPHYLAXIS
     Dosage: 200 MG 1X PER 1 DAY; 100 MG 1 X PER 1 DAY; 50 MG 1X PER 1 DAY
     Route: 048
     Dates: start: 20040322, end: 20050908
  3. ANCARON (AMIODARONE, TABLET) [Suspect]
     Indication: ATRIAL FIBRILLATION
     Dosage: 200 MG 1X PER 1 DAY; 100 MG 1 X PER 1 DAY; 50 MG 1X PER 1 DAY
     Route: 048
     Dates: start: 20050909, end: 20050927
  4. ANCARON (AMIODARONE, TABLET) [Suspect]
     Indication: PROPHYLAXIS
     Dosage: 200 MG 1X PER 1 DAY; 100 MG 1 X PER 1 DAY; 50 MG 1X PER 1 DAY
     Route: 048
     Dates: start: 20050909, end: 20050927
  5. ANCARON (AMIODARONE, TABLET) [Suspect]
     Indication: ATRIAL FIBRILLATION
     Dosage: 200 MG 1X PER 1 DAY; 100 MG 1 X PER 1 DAY; 50 MG 1X PER 1 DAY
     Route: 048
     Dates: start: 20050909, end: 20051005
  6. ANCARON (AMIODARONE, TABLET) [Suspect]
     Indication: PROPHYLAXIS
     Dosage: 200 MG 1X PER 1 DAY; 100 MG 1 X PER 1 DAY; 50 MG 1X PER 1 DAY
     Route: 048
     Dates: start: 20050909, end: 20051005
  7. ENCERON (IFENPRODIL TARTRATE) [Concomitant]
  8. LANSOPRAZOLE [Concomitant]
  9. WARFARIN (WARFARIN) [Concomitant]
  10. RIZE (CLOTIAZEPAM) [Concomitant]
  11. MAGNESIUM SULFATE [Concomitant]
  12. LASIX [Concomitant]
  13. ALLOPURINOL [Concomitant]
  14. MOHRUS (KETOPROFEN) [Concomitant]
  15. EPATEC (KETOPROFEN) [Concomitant]
  16. BROTIZOLAM (BROTIZOLAM) [Concomitant]

REACTIONS (9)
  - ADVERSE DRUG REACTION [None]
  - ANOREXIA [None]
  - BRADYCARDIA [None]
  - DECREASED APPETITE [None]
  - HEPATIC FAILURE [None]
  - HYPONATRAEMIA [None]
  - IRON DEFICIENCY ANAEMIA [None]
  - PNEUMONIA ASPIRATION [None]
  - RESPIRATORY FAILURE [None]
